FAERS Safety Report 7317966-2 (Version None)
Quarter: 2011Q1

REPORT INFORMATION
  Report Type: 
  Country: None (occurrence: None)
  Receive Date: 20110227
  Receipt Date: 20110125
  Transmission Date: 20110831
  Serious: No
  Sender: FDA-Public Use
  Company Number: US-BAYER-2011-012148

PATIENT
  Sex: Male
  Weight: 104 kg

DRUGS (7)
  1. GLIMEPIRIDE [Concomitant]
     Dosage: 1 DF, BID
     Route: 048
  2. HUMALOG [Concomitant]
     Dosage: 1 DF, PRN
     Route: 050
  3. FUROSEMIDE [Concomitant]
     Dosage: 1 DF, QD
     Route: 048
  4. ALEVE (CAPLET) [Suspect]
     Indication: PAIN
     Dosage: 2 DF, BID
     Route: 048
  5. AZOR [Concomitant]
     Dosage: 1 DF, QD
     Route: 048
  6. METFORMIN HCL [Concomitant]
     Dosage: 1 DF, BID
     Route: 048
  7. LANTUS [Concomitant]
     Dosage: 1 DF, BID
     Route: 050

REACTIONS (3)
  - ASTHENIA [None]
  - FEELING ABNORMAL [None]
  - DRUG ADMINISTRATION ERROR [None]
